FAERS Safety Report 6255761-6 (Version None)
Quarter: 2009Q3

REPORT INFORMATION
  Report Type: 
  Country: None (occurrence: None)
  Receive Date: 20090701
  Receipt Date: 20090616
  Transmission Date: 20100115
  Serious: Yes (Other)
  Sender: FDA-Public Use
  Company Number: TPH-00169

PATIENT
  Age: 29 Year
  Sex: Female

DRUGS (1)
  1. ETHINYL ESTRADIOL AND LEVONORGESTREL [Suspect]
     Indication: CONTRACEPTION
     Dosage: ORAL
     Route: 048
     Dates: start: 19990101, end: 20050101

REACTIONS (7)
  - ASTHENIA [None]
  - HAEMATOLOGICAL MALIGNANCY [None]
  - HYPERSOMNIA [None]
  - LUNG CANCER METASTATIC [None]
  - PANCREATIC CARCINOMA METASTATIC [None]
  - TREATMENT NONCOMPLIANCE [None]
  - WHITE BLOOD CELL COUNT DECREASED [None]
